FAERS Safety Report 7878692-4 (Version None)
Quarter: 2011Q4

REPORT INFORMATION
  Report Type: 
  Country: None (occurrence: None)
  Receive Date: 20111020
  Receipt Date: 20110810
  Transmission Date: 20120403
  Serious: No
  Sender: FDA-Public Use
  Company Number: 2011AL000061

PATIENT
  Age: 65 Year
  Sex: Female

DRUGS (9)
  1. ALBUTEROL [Concomitant]
  2. ATENOLOL [Concomitant]
  3. FOLIC ACID [Concomitant]
  4. ASPIRIN [Concomitant]
  5. FOLOTYN [Suspect]
     Indication: MYCOSIS FUNGOIDES
     Dosage: 15 MG/M**2;QW;IV
     Route: 042
     Dates: start: 20110718
  6. FISH OIL [Concomitant]
  7. SILVADENE [Concomitant]
  8. CYANOCOBALAMIN [Concomitant]
  9. SYNTHROID [Concomitant]

REACTIONS (2)
  - EXCORIATION [None]
  - WHITE BLOOD CELL COUNT DECREASED [None]
